FAERS Safety Report 4962676-X (Version None)
Quarter: 2006Q1

REPORT INFORMATION
  Report Type: 
  Country: None (occurrence: None)
  Receive Date: 20060201
  Receipt Date: 20051109
  Transmission Date: 20060701
  Serious: No
  Sender: FDA-Public Use
  Company Number: 2005PV004026

PATIENT
  Age: 65 Year
  Sex: Male
  Weight: 154.223 kg

DRUGS (15)
  1. BYETTA [Suspect]
     Indication: DIABETES MELLITUS NON-INSULIN-DEPENDENT
     Dosage: 5 MCG;BID;SC; 5 MCG;QD;SC
     Route: 058
     Dates: start: 20051107, end: 20051211
  2. BYETTA [Suspect]
     Indication: DIABETES MELLITUS NON-INSULIN-DEPENDENT
     Dosage: 5 MCG;BID;SC; 5 MCG;QD;SC
     Route: 058
     Dates: start: 20051212
  3. LANTUS [Concomitant]
  4. METFORMIN [Concomitant]
  5. ALLOPURINOL [Concomitant]
  6. VITAMIN B COMPLEX CAP [Concomitant]
  7. FISH OIL [Concomitant]
  8. FUROSEMIDE [Concomitant]
  9. K-DUR 10 [Concomitant]
  10. NITROSTATIN [Concomitant]
  11. PLAVIX [Concomitant]
  12. RANITIDINE [Concomitant]
  13. TRICOR [Concomitant]
  14. WARFARIN SODIUM [Concomitant]
  15. ZETIA [Concomitant]

REACTIONS (12)
  - ANGINA PECTORIS [None]
  - ASTHENIA [None]
  - BLOOD GLUCOSE DECREASED [None]
  - BLOOD GLUCOSE FLUCTUATION [None]
  - CHEST PAIN [None]
  - CONSTIPATION [None]
  - COORDINATION ABNORMAL [None]
  - DYSPNOEA [None]
  - IRRITABILITY [None]
  - LOSS OF CONSCIOUSNESS [None]
  - STOMACH DISCOMFORT [None]
  - VISUAL DISTURBANCE [None]
